FAERS Safety Report 17939965 (Version 1)
Quarter: 2020Q2

REPORT INFORMATION
  Report Type: Spontaneous
  Country: DE (occurrence: DE)
  Receive Date: 20200624
  Receipt Date: 20200624
  Transmission Date: 20200714
  Serious: Yes (Hospitalization)
  Sender: FDA-Public Use
  Company Number: DE-MYLANLABS-2020M1057521

PATIENT
  Age: 90 Year
  Sex: Male

DRUGS (18)
  1. FENTANYL. [Suspect]
     Active Substance: FENTANYL
     Indication: PRODUCT USED FOR UNKNOWN INDICATION
     Dosage: 25 ?G, PFLASTER TRANSDERMAL
  2. COLECALCIFEROL [Concomitant]
     Active Substance: CHOLECALCIFEROL
     Dosage: 1000 INTERNATIONAL UNIT, QD, 1-0-0-0
  3. ULTIBRO BREEZHALER [Concomitant]
     Active Substance: GLYCOPYRRONIUM\INDACATEROL
     Dosage: UNK, QD, 85|43 MG, 1-0-0-0
  4. VENLAFAXIN [Concomitant]
     Active Substance: VENLAFAXINE HYDROCHLORIDE
     Dosage: 150 MG, 0.5-0-0-0
  5. FOLIC ACID. [Concomitant]
     Active Substance: FOLIC ACID
     Dosage: 0.4 MG, 0-1-0-0
  6. PREDNISOLON                        /00016201/ [Concomitant]
     Active Substance: PREDNISOLONE
     Dosage: 5 MG, 1.5-0-0-0
  7. METAMIZOL                          /06276701/ [Concomitant]
     Active Substance: METAMIZOLE
     Dosage: 500 MG, BEDARF
  8. BICALUTAMID [Concomitant]
     Active Substance: BICALUTAMIDE
     Dosage: 150 MG, 1-0-0-0
  9. TORASEMID [Concomitant]
     Active Substance: TORSEMIDE
     Dosage: 10 MG, 2-1-0-0
  10. APIXABAN [Concomitant]
     Active Substance: APIXABAN
     Dosage: 2.5 MG, 1-0-1-0
  11. TIM-OPHTAL [Concomitant]
     Active Substance: TIMOLOL MALEATE
     Dosage: UNK, BID, 1-0-1-0
     Route: 047
  12. BISOPROLOL [Concomitant]
     Active Substance: BISOPROLOL
     Dosage: 2.5 MG, 1-0-0-0
  13. THIAMAZOL [Concomitant]
     Active Substance: METHIMAZOLE
     Dosage: 5 MG, PAUSIERT
  14. ZOLPIDEM [Suspect]
     Active Substance: ZOLPIDEM TARTRATE
     Indication: PRODUCT USED FOR UNKNOWN INDICATION
     Dosage: 5 MG, 0-0-0-1
  15. DULCOLAX (BISACODYL) [Concomitant]
     Active Substance: BISACODYL
     Dosage: UNK, QD, 0-0-1-0
  16. LACTULOSE. [Concomitant]
     Active Substance: LACTULOSE
     Dosage: BEDARF
  17. KALINOR RETARD P [Concomitant]
     Active Substance: POTASSIUM CHLORIDE
     Dosage: UNK UNK, BID, 1-1-0-0, KAPSELN
  18. TAMSULOSIN [Concomitant]
     Active Substance: TAMSULOSIN
     Dosage: 0.4 MG, 0-0-1-0

REACTIONS (9)
  - Dyspnoea [Unknown]
  - Musculoskeletal pain [Unknown]
  - Arrhythmia [Unknown]
  - Oedema peripheral [Unknown]
  - Dizziness [Unknown]
  - General physical health deterioration [Unknown]
  - Fall [Unknown]
  - Wound [Unknown]
  - Muscular weakness [Unknown]
